FAERS Safety Report 5427841-6 (Version None)
Quarter: 2007Q3

REPORT INFORMATION
  Report Type: 
  Country: None (occurrence: None)
  Receive Date: 20070828
  Receipt Date: 20070821
  Transmission Date: 20080115
  Serious: Yes (Other)
  Sender: FDA-Public Use
  Company Number: US-GENENTECH-234770

PATIENT
  Sex: Female
  Weight: 87.981 kg

DRUGS (10)
  1. OMALIZUMAB [Suspect]
     Indication: DRUG USE FOR UNKNOWN INDICATION
     Dosage: 150 MG, UNK
     Dates: start: 20060304
  2. PREDNISONE TAB [Concomitant]
     Indication: GASTROENTERITIS EOSINOPHILIC
  3. AMBIEN [Concomitant]
     Indication: INSOMNIA
  4. ZOLOFT [Concomitant]
     Indication: ANXIETY
  5. RHINOCORT [Concomitant]
     Indication: HYPERSENSITIVITY
  6. PULMICORT [Concomitant]
     Indication: ASTHMA
  7. VITAMIN AND MINERAL PRENATAL SUPPLEMENT W/ FOLIC ACID CAP [Concomitant]
     Indication: DRUG USE FOR UNKNOWN INDICATION
  8. CELESTONE TAB [Concomitant]
     Indication: DRUG USE FOR UNKNOWN INDICATION
     Dosage: 2 UNK, UNK
  9. AMPICILLIN [Concomitant]
     Indication: DRUG USE FOR UNKNOWN INDICATION
  10. ZITHROMAX [Concomitant]
     Indication: DRUG USE FOR UNKNOWN INDICATION

REACTIONS (4)
  - DRUG EXPOSURE DURING PREGNANCY [None]
  - GESTATIONAL DIABETES [None]
  - PREMATURE LABOUR [None]
  - PREMATURE RUPTURE OF MEMBRANES [None]
